FAERS Safety Report 10430865 (Version 1)
Quarter: 2014Q3

REPORT INFORMATION
  Report Type: Spontaneous
  Country: US (occurrence: None)
  Receive Date: 20140902
  Receipt Date: 20140902
  Transmission Date: 20150326
  Serious: Yes (Other)
  Sender: FDA-Public Use
  Company Number: 2014-US-010572

PATIENT
  Age: 61 Year
  Sex: Male

DRUGS (1)
  1. XYREM [Suspect]
     Active Substance: SODIUM OXYBATE
     Indication: NARCOLEPSY
     Route: 048
     Dates: start: 201407, end: 2014

REACTIONS (9)
  - Dysarthria [None]
  - Feeling abnormal [None]
  - Cold sweat [None]
  - Hyperhidrosis [None]
  - Hallucination [None]
  - Hypertension [None]
  - Dyspnoea [None]
  - Hyperventilation [None]
  - Disorientation [None]

NARRATIVE: CASE EVENT DATE: 2014
